FAERS Safety Report 5982162-8 (Version None)
Quarter: 2008Q4

REPORT INFORMATION
  Report Type: 
  Country: None (occurrence: None)
  Receive Date: 20081208
  Receipt Date: 20081128
  Transmission Date: 20090506
  Serious: Yes (Other)
  Sender: FDA-Public Use
  Company Number: GB-RANBAXY-2008RR-19692

PATIENT
  Age: 61 Year
  Sex: Male

DRUGS (6)
  1. AMOXICILLIN + CLAVULANATE POTASSIUM [Suspect]
     Indication: LUNG DISORDER
     Dosage: 625 MG, TID
     Route: 048
  2. PENICILLIN G [Suspect]
     Indication: ENDOCARDITIS
     Dosage: 1.2 G, UNK
  3. CIPROFLOXACIN [Concomitant]
     Indication: LUNG DISORDER
     Dosage: UNK
  4. GENTAMICIN [Concomitant]
     Indication: ENDOCARDITIS
  5. CEFTRIAXONE [Concomitant]
     Indication: ENDOCARDITIS
  6. IMIPENEM [Concomitant]
     Dosage: UNK

REACTIONS (1)
  - DRUG INEFFECTIVE [None]
